FAERS Safety Report 23368938 (Version 4)
Quarter: 2024Q1

REPORT INFORMATION
  Report Type: Report from Study
  Country: US (occurrence: US)
  Receive Date: 20240105
  Receipt Date: 20240214
  Transmission Date: 20240410
  Serious: Yes (Hospitalization)
  Sender: FDA-Public Use
  Company Number: US-ULTRAGENYX PHARMACEUTICAL INC.-US-UGX-23-01676

PATIENT
  Age: 10 Year
  Sex: Female
  Weight: 30.9 kg

DRUGS (7)
  1. DOJOLVI [Suspect]
     Active Substance: TRIHEPTANOIN
     Indication: Very long-chain acyl-coenzyme A dehydrogenase deficiency
     Dosage: 17.5 MILLILITER, QID
  2. DOJOLVI [Suspect]
     Active Substance: TRIHEPTANOIN
     Dosage: 20 MILLILITER, QID, 8.3 KCL/ML
  3. DOJOLVI [Suspect]
     Active Substance: TRIHEPTANOIN
     Dosage: UNK
     Dates: start: 20231213
  4. DOJOLVI [Suspect]
     Active Substance: TRIHEPTANOIN
     Dosage: 80 MILLILITER, QID
     Dates: start: 202312
  5. MUCINEX [Concomitant]
     Active Substance: GUAIFENESIN
     Indication: Product used for unknown indication
     Dosage: 1200 MILLIGRAM, Q12H, TABLETS
  6. MOTRIN IB [Concomitant]
     Active Substance: IBUPROFEN
     Indication: Product used for unknown indication
     Dosage: 200 MILLIGRAM, TABLET
  7. VITAMINS [Concomitant]
     Active Substance: VITAMINS
     Indication: Product used for unknown indication
     Dosage: UNK

REACTIONS (8)
  - Cardiac disorder [Recovering/Resolving]
  - Long QT syndrome [Recovering/Resolving]
  - Hiccups [Recovered/Resolved]
  - Vomiting [Recovered/Resolved]
  - Rhinovirus infection [Recovered/Resolved]
  - Metabolic disorder [Recovered/Resolved]
  - Blood creatine phosphokinase increased [Recovered/Resolved]
  - Asthenia [Recovered/Resolved]

NARRATIVE: CASE EVENT DATE: 20231213
